FAERS Safety Report 25022966 (Version 1)
Quarter: 2025Q1

REPORT INFORMATION
  Report Type: Spontaneous
  Country: US (occurrence: None)
  Receive Date: 20250228
  Receipt Date: 20250228
  Transmission Date: 20250409
  Serious: Yes (Hospitalization)
  Sender: FDA-CTU
  Company Number: None

PATIENT
  Age: 69 Year
  Sex: Male
  Weight: 73.5 kg

DRUGS (1)
  1. CISPLATIN [Suspect]
     Active Substance: CISPLATIN
     Dates: end: 20250217

REACTIONS (4)
  - Tracheal obstruction [None]
  - Laryngeal mass [None]
  - SARS-CoV-2 test positive [None]
  - Laryngeal stenosis [None]

NARRATIVE: CASE EVENT DATE: 20250222
